FAERS Safety Report 10346670 (Version 9)
Quarter: 2015Q1

REPORT INFORMATION
  Report Type: Report from Study
  Country: US (occurrence: US)
  Receive Date: 20140729
  Receipt Date: 20150226
  Transmission Date: 20150720
  Serious: Yes (Hospitalization)
  Sender: FDA-Public Use
  Company Number: US-BIOGENIDEC-2014BI072907

PATIENT
  Age: 48 Year
  Sex: Male

DRUGS (1)
  1. TYSABRI [Suspect]
     Active Substance: NATALIZUMAB
     Indication: MULTIPLE SCLEROSIS
     Route: 042
     Dates: start: 20130703

REACTIONS (20)
  - Frustration [Recovered/Resolved]
  - Urinary tract infection [Recovered/Resolved]
  - Spinal fusion surgery [Recovered/Resolved]
  - Visual acuity reduced [Not Recovered/Not Resolved]
  - Multiple sclerosis [Not Recovered/Not Resolved]
  - Back pain [Recovered/Resolved]
  - Impaired healing [Recovered/Resolved]
  - Multiple sclerosis relapse [Recovered/Resolved]
  - Staphylococcal infection [Recovered/Resolved]
  - Gallbladder disorder [Recovered/Resolved]
  - Abdominal hernia [Recovered/Resolved]
  - Influenza [Recovered/Resolved]
  - Fear [Recovered/Resolved]
  - Asthenia [Recovered/Resolved]
  - Peritoneal perforation [Recovered/Resolved]
  - Stress [Recovered/Resolved]
  - Central nervous system lesion [Not Recovered/Not Resolved]
  - Malaise [Recovered/Resolved]
  - Abdominal operation [Recovered/Resolved]
  - Meniscus injury [Recovered/Resolved]

NARRATIVE: CASE EVENT DATE: 20130703
